FAERS Safety Report 15960623 (Version 3)
Quarter: 2025Q4

REPORT INFORMATION
  Report Type: Spontaneous
  Country: EU (occurrence: EU)
  Receive Date: 20190214
  Receipt Date: 20251111
  Transmission Date: 20260117
  Serious: Yes (Congenital Anomaly, Other)
  Sender: AUROBINDO
  Company Number: EU-AUROBINDO-AUR-APL-2019-008198

PATIENT

DRUGS (3)
  1. VALGANCICLOVIR [Suspect]
     Active Substance: VALGANCICLOVIR
     Indication: Cytomegalovirus infection
     Dosage: UNK
     Route: 064
  2. VALGANCICLOVIR [Suspect]
     Active Substance: VALGANCICLOVIR
     Dosage: 900 MILLIGRAM, DAILY
     Route: 064
  3. VALGANCICLOVIR [Suspect]
     Active Substance: VALGANCICLOVIR
     Dosage: 900 MILLIGRAM, TWO TIMES A DAY
     Route: 064

REACTIONS (4)
  - Deafness congenital [Unknown]
  - Foetal exposure during pregnancy [Unknown]
  - Intentional product use issue [Unknown]
  - Off label use [Unknown]
